FAERS Safety Report 6128793-6 (Version None)
Quarter: 2009Q1

REPORT INFORMATION
  Report Type: 
  Country: None (occurrence: None)
  Receive Date: 20090323
  Receipt Date: 20090322
  Transmission Date: 20090719
  Serious: Yes (Disabling)
  Sender: FDA-Public Use
  Company Number: ZA-MERCK-0903ZAF00007

PATIENT
  Age: 56 Year
  Sex: Female

DRUGS (1)
  1. FOSAMAX PLUS D [Suspect]
     Indication: OSTEOPOROSIS
     Route: 048
     Dates: end: 20090104

REACTIONS (1)
  - DRUG ERUPTION [None]
